FAERS Safety Report 5689048-7 (Version None)
Quarter: 2008Q1

REPORT INFORMATION
  Report Type: 
  Country: None (occurrence: None)
  Receive Date: 20080331
  Receipt Date: 20080326
  Transmission Date: 20080703
  Serious: Yes (Death)
  Sender: FDA-Public Use
  Company Number: B0511997A

PATIENT
  Age: 63 Year
  Sex: Male

DRUGS (5)
  1. PAXIL [Suspect]
     Dosage: 20MG PER DAY
     Route: 048
     Dates: start: 20080219
  2. WYPAX [Concomitant]
     Indication: NEUROSIS
     Dosage: 1.5MG PER DAY
     Route: 048
     Dates: start: 20080219
  3. LEVOTOMIN [Concomitant]
     Dosage: 5MG PER DAY
     Route: 048
     Dates: start: 20080219
  4. MYSLEE [Concomitant]
     Indication: INSOMNIA
     Dosage: 10MG PER DAY
     Route: 048
     Dates: start: 20080219
  5. ZANTAC [Concomitant]
     Route: 065

REACTIONS (2)
  - COMPLETED SUICIDE [None]
  - SHOCK HAEMORRHAGIC [None]
